FAERS Safety Report 7417747-5 (Version None)
Quarter: 2011Q2

REPORT INFORMATION
  Report Type: 
  Country: None (occurrence: None)
  Receive Date: 20110412
  Receipt Date: 20110412
  Transmission Date: 20111010
  Serious: No
  Sender: FDA-Public Use
  Company Number: None

PATIENT
  Sex: Female
  Weight: 71.2147 kg

DRUGS (1)
  1. AVELOX [Suspect]
     Dosage: 1 TABLET ONCE DAILY  1 DOSE
     Dates: start: 20110327

REACTIONS (6)
  - DYSPHAGIA [None]
  - TREMOR [None]
  - PRURITUS GENERALISED [None]
  - NERVOUSNESS [None]
  - PRURITUS [None]
  - SYNCOPE [None]
